FAERS Safety Report 5450141-5 (Version None)
Quarter: 2007Q3

REPORT INFORMATION
  Report Type: 
  Country: None (occurrence: None)
  Receive Date: 20070912
  Receipt Date: 20070907
  Transmission Date: 20080115
  Serious: Yes (Hospitalization)
  Sender: FDA-Public Use
  Company Number: B0482536A

PATIENT
  Age: 19 Month
  Sex: Male
  Weight: 11 kg

DRUGS (4)
  1. CEFAMEZIN [Suspect]
     Indication: UPPER RESPIRATORY TRACT INFECTION
     Dosage: .25MG PER DAY
     Route: 042
     Dates: start: 20070718, end: 20070718
  2. CEFROXADINE [Suspect]
     Indication: UPPER RESPIRATORY TRACT INFECTION
     Route: 048
     Dates: start: 20070718, end: 20070718
  3. VEEN-3G [Concomitant]
     Dates: start: 20070719, end: 20070723
  4. POTACOL-R [Concomitant]
     Route: 065
     Dates: start: 20070719, end: 20070722

REACTIONS (6)
  - DRUG ERUPTION [None]
  - PETECHIAE [None]
  - PIGMENTATION DISORDER [None]
  - RASH ERYTHEMATOUS [None]
  - RASH GENERALISED [None]
  - RASH PAPULAR [None]
